FAERS Safety Report 8474088-5 (Version None)
Quarter: 2012Q2

REPORT INFORMATION
  Report Type: 
  Country: None (occurrence: None)
  Receive Date: 20120628
  Receipt Date: 20110816
  Transmission Date: 20120825
  Serious: Yes (Other)
  Sender: FDA-Public Use
  Company Number: US-MYLANLABS-2011S1008716

PATIENT
  Age: 52 Year
  Sex: Male

DRUGS (12)
  1. RISPERDAL [Concomitant]
  2. MULTI-VITAMIN [Concomitant]
  3. COUMADIN [Concomitant]
  4. CLARITIN /00413701/ [Concomitant]
  5. POTASSIUM ACETATE [Concomitant]
  6. LASIX [Concomitant]
  7. CLOZAPINE [Suspect]
     Indication: PSYCHOTIC DISORDER
     Route: 048
     Dates: end: 20110503
  8. TENORMIN [Concomitant]
  9. CAPTOPRIL [Concomitant]
  10. DIGOXIN [Concomitant]
  11. LEXAPRO [Concomitant]
  12. ATIVAN [Concomitant]

REACTIONS (2)
  - LEUKOPENIA [None]
  - GRANULOCYTOPENIA [None]
